FAERS Safety Report 15611169 (Version 1)
Quarter: 2018Q4

REPORT INFORMATION
  Report Type: Report from Study
  Country: None (occurrence: US)
  Receive Date: 20181113
  Receipt Date: 20181113
  Transmission Date: 20190205
  Serious: Yes (Other)
  Sender: FDA-Public Use
  Company Number: US-ABBVIE-18K-163-2543760-00

PATIENT
  Age: 35 Year
  Sex: Male
  Weight: 112.14 kg

DRUGS (12)
  1. GARLIC. [Concomitant]
     Active Substance: GARLIC
     Indication: CARDIOVASCULAR EVENT PROPHYLAXIS
  2. OREGANO. [Concomitant]
     Active Substance: OREGANO
     Indication: ANTIINFLAMMATORY THERAPY
  3. ZYRTEC [Concomitant]
     Active Substance: CETIRIZINE HYDROCHLORIDE
     Indication: HYPERSENSITIVITY
  4. HUMIRA [Suspect]
     Active Substance: ADALIMUMAB
     Indication: CROHN^S DISEASE
     Route: 058
     Dates: start: 201609
  5. DEPAKOTE [Concomitant]
     Active Substance: DIVALPROEX SODIUM
     Indication: SEIZURE
  6. CALCIUM MAGNESIUM ZINC [Concomitant]
     Active Substance: CALCIUM\MAGNESIUM\ZINC
     Indication: MINERAL SUPPLEMENTATION
  7. LIVER DETOX [Concomitant]
     Indication: DETOXIFICATION
  8. VITAMIN E [Concomitant]
     Active Substance: .ALPHA.-TOCOPHEROL
     Indication: SKIN DISORDER
  9. FOLIC ACID. [Concomitant]
     Active Substance: FOLIC ACID
     Indication: VITAMIN SUPPLEMENTATION
  10. BETA CAROTENE [Concomitant]
     Indication: SKIN DISORDER
  11. AUGMENTIN [Concomitant]
     Active Substance: AMOXICILLIN\CLAVULANATE POTASSIUM
     Indication: ANTIBIOTIC PROPHYLAXIS
  12. RESVERATROL [Concomitant]
     Active Substance: DIETARY SUPPLEMENT\RESVERATROL
     Indication: ANTIOXIDANT THERAPY

REACTIONS (25)
  - Hyperhidrosis [Recovered/Resolved]
  - Mobility decreased [Recovering/Resolving]
  - Dysuria [Recovering/Resolving]
  - Viral infection [Recovered/Resolved]
  - Hyperhidrosis [Recovered/Resolved]
  - Musculoskeletal pain [Recovering/Resolving]
  - Musculoskeletal pain [Recovered/Resolved]
  - Insomnia [Recovering/Resolving]
  - Parosmia [Recovering/Resolving]
  - Chills [Recovered/Resolved]
  - Pyrexia [Recovered/Resolved]
  - Infected fistula [Recovering/Resolving]
  - Chills [Recovered/Resolved]
  - Pain [Recovered/Resolved]
  - Pain [Recovered/Resolved]
  - Anxiety [Not Recovered/Not Resolved]
  - Mobility decreased [Recovered/Resolved]
  - Procedural pain [Recovering/Resolving]
  - Fistula discharge [Recovering/Resolving]
  - Procedural pain [Recovered/Resolved]
  - Anal fistula [Recovering/Resolving]
  - Dyspnoea [Recovered/Resolved]
  - Pyrexia [Recovered/Resolved]
  - Respiratory tract infection [Recovered/Resolved]
  - Dyspnoea [Recovered/Resolved]

NARRATIVE: CASE EVENT DATE: 201708
